FAERS Safety Report 8930470 (Version 3)
Quarter: 2012Q4

REPORT INFORMATION
  Report Type: 
  Country: JP (occurrence: JP)
  Receive Date: 20121128
  Receipt Date: 20121224
  Transmission Date: 20130627
  Serious: Yes (Hospitalization, Other)
  Sender: FDA-Public Use
  Company Number: JP-ROCHE-1160637

PATIENT
  Age: 83 Year
  Sex: Male
  Weight: 40 kg

DRUGS (9)
  1. MIRCERA [Suspect]
     Indication: NEPHROGENIC ANAEMIA
     Route: 058
     Dates: start: 20120822
  2. ATELEC [Concomitant]
     Indication: HYPERTENSION
     Route: 048
     Dates: start: 20120314
  3. AVAPRO [Concomitant]
     Indication: HYPERTENSION
     Route: 048
     Dates: start: 20111228
  4. ANPLAG [Concomitant]
     Indication: PROPHYLAXIS
     Route: 048
     Dates: start: 20120418
  5. ZYLORIC [Concomitant]
     Indication: HYPERURICAEMIA
     Route: 048
     Dates: start: 20120328
  6. DOGMATYL [Concomitant]
     Indication: DECREASED APPETITE
     Route: 048
     Dates: start: 20120620
  7. ANTOBRON [Concomitant]
     Indication: CHRONIC OBSTRUCTIVE PULMONARY DISEASE
     Route: 048
     Dates: start: 20120822
  8. DEPAS [Concomitant]
     Indication: INSOMNIA
     Route: 048
     Dates: start: 20120201
  9. MUCODYNE [Concomitant]
     Indication: CHRONIC OBSTRUCTIVE PULMONARY DISEASE
     Route: 048
     Dates: start: 20120822

REACTIONS (3)
  - Renal impairment [Not Recovered/Not Resolved]
  - Cardiac failure [Unknown]
  - Blood pressure increased [Unknown]
